FAERS Safety Report 9054239 (Version 2)
Quarter: 2013Q1

REPORT INFORMATION
  Report Type: Spontaneous
  Country: CA (occurrence: CA)
  Receive Date: 20130208
  Receipt Date: 20130218
  Transmission Date: 20140127
  Serious: Yes (Other)
  Sender: FDA-Public Use
  Company Number: CA-GLAXOSMITHKLINE-A1008878A

PATIENT
  Age: 73 Year
  Sex: Male

DRUGS (4)
  1. PAROXETINE [Suspect]
     Indication: DEPRESSION
     Route: 065
     Dates: start: 2007
  2. TYLENOL [Concomitant]
  3. VALIUM [Concomitant]
  4. SLEEPING PILL [Concomitant]

REACTIONS (10)
  - Nightmare [Unknown]
  - Fall [Unknown]
  - Head injury [Unknown]
  - Dizziness [Unknown]
  - Neck pain [Unknown]
  - Sleep disorder [Unknown]
  - Confusional state [Unknown]
  - Headache [Unknown]
  - Pain [Unknown]
  - Suicidal ideation [Unknown]
